FAERS Safety Report 8573552 (Version 6)
Quarter: 2013Q1

REPORT INFORMATION
  Report Type: Spontaneous
  Country: US (occurrence: US)
  Receive Date: 20120522
  Receipt Date: 20130322
  Transmission Date: 20140127
  Serious: Yes (Life-Threatening, Congenital Anomaly, Other)
  Sender: FDA-Public Use
  Company Number: US-PFIZER INC-2012121228

PATIENT
  Age: 1 Day
  Sex: Male
  Weight: 3.9 kg

DRUGS (6)
  1. ZOLOFT [Suspect]
     Indication: DEPRESSION
     Dosage: 50 MG, UNK
     Route: 064
     Dates: start: 200901, end: 200904
  2. PROGESTERONE [Concomitant]
     Dosage: UNK
     Route: 064
     Dates: end: 2009
  3. LEXAPRO [Concomitant]
     Indication: DEPRESSION
     Dosage: 10 MG DAILY, UNK
     Route: 064
     Dates: end: 20090907
  4. LEXAPRO [Concomitant]
     Dosage: 20 MG DAILY, UNK
     Route: 064
     Dates: end: 20090907
  5. PRENATAL VITAMINS [Concomitant]
     Dosage: DAILY, UNK
     Route: 064
     Dates: end: 20090907
  6. SERTRALINE [Concomitant]
     Dosage: 50 MG, 1X/DAY
     Route: 064
     Dates: start: 20090114

REACTIONS (3)
  - Maternal exposure timing unspecified [Recovering/Resolving]
  - Congenital anomaly [Unknown]
  - Talipes [Recovering/Resolving]
